FAERS Safety Report 16908855 (Version 1)
Quarter: 2019Q4

REPORT INFORMATION
  Report Type: Spontaneous
  Country: US (occurrence: US)
  Receive Date: 20191011
  Receipt Date: 20191011
  Transmission Date: 20200122
  Serious: Yes (Hospitalization, Other)
  Sender: FDA-Public Use
  Company Number: US-HIKMA PHARMACEUTICALS USA INC.-US-H14001-19-49294

PATIENT
  Age: 76 Year
  Sex: Male

DRUGS (2)
  1. MYCOPHENOLATE [Suspect]
     Active Substance: MYCOPHENOLIC ACID
     Indication: LIMBIC ENCEPHALITIS
     Dosage: ()
     Route: 065
  2. IMMUNOGLOBULINS (IVIG) [Concomitant]
     Active Substance: HUMAN IMMUNOGLOBULIN G
     Indication: LIMBIC ENCEPHALITIS
     Dosage: HIGH DOSE ()
     Route: 042

REACTIONS (3)
  - Limbic encephalitis [Unknown]
  - Hyponatraemia [Unknown]
  - Condition aggravated [Unknown]
